FAERS Safety Report 16044757 (Version 1)
Quarter: 2019Q1

REPORT INFORMATION
  Report Type: Spontaneous
  Country: ES (occurrence: ES)
  Receive Date: 20190307
  Receipt Date: 20190307
  Transmission Date: 20190418
  Serious: Yes (Hospitalization, Other)
  Sender: FDA-Public Use
  Company Number: ES-AUROBINDO-AUR-APL-2019-011473

PATIENT

DRUGS (6)
  1. REVLIMID [Suspect]
     Active Substance: LENALIDOMIDE
     Indication: PLASMA CELL MYELOMA
     Dosage: 10 MILLIGRAM
     Route: 048
     Dates: start: 20160912
  2. PARACETAMOL [Suspect]
     Active Substance: ACETAMINOPHEN
     Indication: PAIN
     Dosage: 3 GRAM
     Route: 048
     Dates: start: 20180124
  3. REVLIMID [Suspect]
     Active Substance: LENALIDOMIDE
     Dosage: 1 UNK, ONCE A DAY
     Route: 048
     Dates: start: 20180102, end: 20180122
  4. REVLIMID [Suspect]
     Active Substance: LENALIDOMIDE
     Dosage: UNK
     Route: 048
     Dates: start: 20180224
  5. ENANTYUM [Suspect]
     Active Substance: DEXKETOPROFEN TROMETAMOL
     Indication: PAIN
     Dosage: 75 MILLIGRAM
     Route: 048
     Dates: start: 20180124
  6. CLEXANE [Suspect]
     Active Substance: ENOXAPARIN SODIUM
     Indication: THROMBOSIS PROPHYLAXIS
     Dosage: 40 MILLIGRAM, ONCE A DAY
     Route: 058
     Dates: start: 20180125

REACTIONS (1)
  - Femur fracture [Recovered/Resolved]

NARRATIVE: CASE EVENT DATE: 20180124
